FAERS Safety Report 6880833-2 (Version None)
Quarter: 2010Q3

REPORT INFORMATION
  Report Type: 
  Country: None (occurrence: None)
  Receive Date: 20100728
  Receipt Date: 20100716
  Transmission Date: 20110219
  Serious: Yes (Other)
  Sender: FDA-Public Use
  Company Number: US-ELI_LILLY_AND_COMPANY-US201006005541

PATIENT
  Age: 61 Year
  Sex: Female
  Weight: 298 kg

DRUGS (2)
  1. CIALIS [Suspect]
     Indication: ANORGASMIA
     Dosage: 5 MG, UNKNOWN
     Dates: start: 20100609, end: 20100611
  2. AMLODIPINE [Concomitant]
     Dosage: 10 MG, DAILY (1/D)

REACTIONS (2)
  - OFF LABEL USE [None]
  - OPTIC ISCHAEMIC NEUROPATHY [None]
